FAERS Safety Report 9624384 (Version 4)
Quarter: 2014Q1

REPORT INFORMATION
  Report Type: Report from Study
  Country: JP (occurrence: JP)
  Receive Date: 20131015
  Receipt Date: 20140319
  Transmission Date: 20141002
  Serious: Yes (Hospitalization)
  Sender: FDA-Public Use
  Company Number: JP-GLAXOSMITHKLINE-B0911888A

PATIENT
  Age: 77 Year
  Sex: Female
  Weight: 47 kg

DRUGS (3)
  1. VOTRIENT 200MG [Suspect]
     Indication: LIPOSARCOMA
     Dosage: 800MG PER DAY
     Route: 048
     Dates: start: 20130709, end: 20130906
  2. TRAMCET [Suspect]
     Indication: BACK PAIN
     Route: 048
  3. BONALON [Suspect]
     Route: 048

REACTIONS (5)
  - Pancytopenia [Recovered/Resolved]
  - Vomiting [Unknown]
  - Hypertension [Recovering/Resolving]
  - Hypoaesthesia [Unknown]
  - Dysgeusia [Unknown]
